FAERS Safety Report 6600848-9 (Version None)
Quarter: 2010Q1

REPORT INFORMATION
  Report Type: 
  Country: None (occurrence: None)
  Receive Date: 20100223
  Receipt Date: 20100223
  Transmission Date: 20100710
  Serious: Yes (Death)
  Sender: FDA-Public Use
  Company Number: None

PATIENT
  Age: 2 Year
  Sex: Female

DRUGS (3)
  1. RETROVIR [Suspect]
     Indication: HIV INFECTION
     Dosage: 200 MG BID ORAL
     Route: 048
     Dates: start: 20090527, end: 20100126
  2. KALETRA [Suspect]
     Indication: HIV INFECTION
     Dosage: 320 MG BID ORAL
     Route: 048
     Dates: start: 20090527, end: 20100126
  3. COTRIMOXAZOLE [Concomitant]

REACTIONS (5)
  - ASTHENIA [None]
  - DISEASE COMPLICATION [None]
  - GASTROENTERITIS [None]
  - GENERAL PHYSICAL HEALTH DETERIORATION [None]
  - RESPIRATORY ARREST [None]
